FAERS Safety Report 5110900-5 (Version None)
Quarter: 2006Q3

REPORT INFORMATION
  Report Type: 
  Country: None (occurrence: None)
  Receive Date: 20060919
  Receipt Date: 20060911
  Transmission Date: 20061208
  Serious: Yes (Other)
  Sender: FDA-Public Use
  Company Number: DE-2006-026602

PATIENT
  Age: 18 Year
  Sex: Female

DRUGS (1)
  1. YASMIN [Suspect]
     Dates: start: 20051201

REACTIONS (2)
  - DEPRESSION [None]
  - SUICIDAL IDEATION [None]
